FAERS Safety Report 16043230 (Version 6)
Quarter: 2019Q2

REPORT INFORMATION
  Report Type: Spontaneous
  Country: US (occurrence: US)
  Receive Date: 20190306
  Receipt Date: 20190510
  Transmission Date: 20190711
  Serious: Yes (Death, Life-Threatening, Hospitalization, Other)
  Sender: FDA-Public Use
  Company Number: PHEH2019US009484

PATIENT
  Age: 21 Year
  Sex: Male
  Weight: 84 kg

DRUGS (1)
  1. KYMRIAH [Suspect]
     Active Substance: TISAGENLECLEUCEL
     Indication: ACUTE LYMPHOCYTIC LEUKAEMIA
     Dosage: UNK UNK, ONCE/SINGLE (ONE SINGLE DOSE)
     Route: 042
     Dates: start: 20190227, end: 20190227

REACTIONS (11)
  - Respiratory distress [Not Recovered/Not Resolved]
  - Pulmonary haemorrhage [Unknown]
  - Pericardial effusion [Unknown]
  - Electrocardiogram abnormal [Unknown]
  - Cytokine release syndrome [Not Recovered/Not Resolved]
  - Ventricular tachycardia [Recovered/Resolved]
  - Pyrexia [Recovered/Resolved]
  - Anxiety [Recovering/Resolving]
  - Cytopenia [Not Recovered/Not Resolved]
  - Death [Fatal]
  - Pleural effusion [Unknown]

NARRATIVE: CASE EVENT DATE: 20190227
